FAERS Safety Report 11146068 (Version 1)
Quarter: 2015Q2

REPORT INFORMATION
  Report Type: Spontaneous
  Country: US (occurrence: None)
  Receive Date: 20150527
  Receipt Date: 20150527
  Transmission Date: 20150821
  Serious: No
  Sender: FDA-Public Use
  Company Number: None

PATIENT
  Age: 49 Year
  Sex: Male

DRUGS (4)
  1. TIMOLOL [Concomitant]
     Active Substance: TIMOLOL
  2. TERAZOSIN [Suspect]
     Active Substance: TERAZOSIN\TERAZOSIN HYDROCHLORIDE
     Indication: PROSTATOMEGALY
     Dosage: 1 DAILY BEFORE EVENING MEAL
  3. LATANOPRAIT [Concomitant]
  4. FLOMAX [Suspect]
     Active Substance: TAMSULOSIN HYDROCHLORIDE
     Indication: PROSTATOMEGALY
     Dosage: 1 A DAY, BEFORE EVENING MEAL
     Dates: start: 201308, end: 201503

REACTIONS (4)
  - Adverse drug reaction [None]
  - Drug abuse [None]
  - Euphoric mood [None]
  - Alcohol use [None]

NARRATIVE: CASE EVENT DATE: 20130909
